FAERS Safety Report 4395299-4 (Version None)
Quarter: 2004Q2

REPORT INFORMATION
  Report Type: 
  Country: None (occurrence: None)
  Receive Date: 20040621
  Receipt Date: 20031024
  Transmission Date: 20050107
  Serious: Yes (Hospitalization)
  Sender: FDA-Public Use
  Company Number: USA-2003-0010454

PATIENT
  Sex: Male

DRUGS (11)
  1. OXYCONTIN [Suspect]
     Indication: PAIN
     Dosage: 560 MG, DAILY
  2. HUMIBID [Concomitant]
  3. MEDROL [Concomitant]
  4. PREVACID [Concomitant]
  5. SINGULAIR [Concomitant]
  6. COMBIVENT [Concomitant]
  7. REGULAR INSULIN [Concomitant]
  8. NPH INSULIN [Concomitant]
  9. POTASSIUM [Concomitant]
  10. LASIX [Concomitant]
  11. VALIUM [Concomitant]

REACTIONS (5)
  - ACTIVITIES OF DAILY LIVING IMPAIRED [None]
  - DRUG WITHDRAWAL SYNDROME [None]
  - DYSPNOEA [None]
  - EMOTIONAL DISTRESS [None]
  - HYPERHIDROSIS [None]
